FAERS Safety Report 12665495 (Version 2)
Quarter: 2016Q4

REPORT INFORMATION
  Report Type: Report from Study
  Country: UY (occurrence: UY)
  Receive Date: 20160818
  Receipt Date: 20161010
  Transmission Date: 20170207
  Serious: Yes (Death, Hospitalization)
  Sender: FDA-Public Use
  Company Number: DE-ACTELION-A-US2016-140859

PATIENT
  Age: 46 Year
  Sex: Female

DRUGS (6)
  1. FUROSEMIDE. [Concomitant]
     Active Substance: FUROSEMIDE
  2. SPIRONOLACTONE. [Concomitant]
     Active Substance: SPIRONOLACTONE
  3. METFORMIN [Concomitant]
     Active Substance: METFORMIN HYDROCHLORIDE
  4. SILDENAFIL. [Concomitant]
     Active Substance: SILDENAFIL
  5. DIGOXIN. [Concomitant]
     Active Substance: DIGOXIN
  6. VENTAVIS [Suspect]
     Active Substance: ILOPROST
     Indication: PULMONARY HYPERTENSION
     Dosage: 4 DF, QD
     Route: 055
     Dates: start: 20160520

REACTIONS (5)
  - Right ventricular failure [Fatal]
  - Generalised oedema [Fatal]
  - Renal failure [Fatal]
  - Anuria [Fatal]
  - Product use issue [Unknown]

NARRATIVE: CASE EVENT DATE: 20160615
